FAERS Safety Report 4312600-8 (Version None)
Quarter: 2004Q1

REPORT INFORMATION
  Report Type: 
  Country: None (occurrence: None)
  Receive Date: 20040226
  Receipt Date: 20040209
  Transmission Date: 20041129
  Serious: No
  Sender: FDA-Public Use
  Company Number: CART-10307

PATIENT
  Age: 45 Year
  Sex: Male

DRUGS (1)
  1. CARTICEL [Suspect]
     Indication: BONE DISORDER
     Dosage: 1 NA ONCE IS
     Dates: start: 19990714, end: 19990714

REACTIONS (3)
  - CHONDROMALACIA [None]
  - FAILURE OF IMPLANT [None]
  - GRAFT DYSFUNCTION [None]
